FAERS Safety Report 23152286 (Version 1)
Quarter: 2023Q4

REPORT INFORMATION
  Report Type: Spontaneous
  Country: BE (occurrence: BE)
  Receive Date: 20231107
  Receipt Date: 20231107
  Transmission Date: 20240109
  Serious: Yes (Other)
  Sender: FDA-Public Use
  Company Number: BE-GLAXOSMITHKLINE-BE2023EME152474

PATIENT

DRUGS (1)
  1. NUCALA [Suspect]
     Active Substance: MEPOLIZUMAB
     Indication: Chronic rhinosinusitis with nasal polyps
     Dosage: UNK, 100, Q4W
     Route: 058
     Dates: start: 20230731

REACTIONS (3)
  - Angina pectoris [Recovered/Resolved]
  - Abdominal pain [Recovered/Resolved]
  - Poor quality sleep [Recovered/Resolved]
